FAERS Safety Report 11776306 (Version 1)
Quarter: 2015Q4

REPORT INFORMATION
  Report Type: Report from Study
  Country: US (occurrence: US)
  Receive Date: 20151125
  Receipt Date: 20151125
  Transmission Date: 20160304
  Serious: Yes (Other)
  Sender: FDA-Public Use
  Company Number: US-ROCHE-1665972

PATIENT
  Age: 76 Year
  Sex: Female
  Weight: 81.72 kg

DRUGS (14)
  1. TRAZODONE [Concomitant]
     Active Substance: TRAZODONE HYDROCHLORIDE
     Indication: SEIZURE
     Route: 048
  2. XOLAIR [Suspect]
     Active Substance: OMALIZUMAB
     Indication: URTICARIA
     Route: 058
     Dates: start: 201508
  3. FLUOXETINE [Concomitant]
     Active Substance: FLUOXETINE HYDROCHLORIDE
     Dosage: STARTED MEDICATION ABOUT 15 YEARS AGO.
     Route: 048
  4. LIDOCAINE 5% OINTMENT [Concomitant]
     Indication: PAIN
  5. BENADRYL + DYCLONE MOUTHRINSE [Concomitant]
     Indication: URTICARIA
     Dosage: AS NEEDED, STARTED MEDICATION ABOUT 40 YEARS AGO.
     Route: 048
  6. ZYRTEC [Concomitant]
     Active Substance: CETIRIZINE HYDROCHLORIDE
     Indication: ABDOMINAL DISCOMFORT
  7. ZANTAC [Concomitant]
     Active Substance: RANITIDINE HYDROCHLORIDE
     Indication: HYPERSENSITIVITY
     Dosage: OFF AND ON FOR 5 YEARS. TAKES AS NEEDED.
     Route: 048
  8. ACETAMINOPHEN. [Concomitant]
     Active Substance: ACETAMINOPHEN
     Indication: PAIN
     Dosage: AS NEEDED. STARTED AT LEAST 10 YEARS AGO.
     Route: 048
  9. LASIX [Concomitant]
     Active Substance: FUROSEMIDE
     Indication: FLUID RETENTION
     Dosage: STARTED MEDICATION LESS THAN A YEAR AGO.
     Route: 048
  10. LIDOCAINE 5% OINTMENT [Concomitant]
     Indication: URTICARIA
     Dosage: AS NEEDED. PATCH. STARTED 3 OR 4 YEARS AGO.
     Route: 065
  11. LORAZEPAM. [Concomitant]
     Active Substance: LORAZEPAM
     Indication: SEIZURE
     Dosage: STARTED MEDICATION ABOUT 35 YEARS AGO.
     Route: 048
  12. OMEPRAZOLE. [Concomitant]
     Active Substance: OMEPRAZOLE
     Indication: HYPERSENSITIVITY
     Dosage: AS NEEDED. STARTED MEDICATION ABOUT 5 YEARS AGO.
     Route: 048
  13. ZYRTEC [Concomitant]
     Active Substance: CETIRIZINE HYDROCHLORIDE
     Indication: HYPERSENSITIVITY
     Dosage: AS NEEDED. STARTED MEDICATION ABOUT 5 YEARS AGO.
     Route: 048
  14. BENADRYL + DYCLONE MOUTHRINSE [Concomitant]
     Indication: PRURITUS

REACTIONS (10)
  - Urticaria [Not Recovered/Not Resolved]
  - Abdominal distension [Unknown]
  - Peripheral swelling [Not Recovered/Not Resolved]
  - Dizziness [Unknown]
  - Eye swelling [Recovering/Resolving]
  - Rhinorrhoea [Not Recovered/Not Resolved]
  - Tooth fracture [Not Recovered/Not Resolved]
  - Bone pain [Recovered/Resolved]
  - Sinus headache [Unknown]
  - Flatulence [Not Recovered/Not Resolved]

NARRATIVE: CASE EVENT DATE: 20150806
